FAERS Safety Report 4642422-X (Version None)
Quarter: 2005Q2

REPORT INFORMATION
  Report Type: 
  Country: None (occurrence: None)
  Receive Date: 20050420
  Receipt Date: 20050405
  Transmission Date: 20051028
  Serious: Yes (Hospitalization)
  Sender: FDA-Public Use
  Company Number: EWC050443437

PATIENT
  Age: 58 Year
  Sex: Male

DRUGS (9)
  1. ALIMTA [Suspect]
     Indication: METASTATIC BRONCHIAL CARCINOMA
     Dosage: 500 MG/M2
     Dates: start: 20050308
  2. DUROGESIC (FENTANYL) [Concomitant]
  3. PANTOPRAZOLE SODIUM [Concomitant]
  4. THROMBO ASS (ACETYLSALICYLIC ACID) [Concomitant]
  5. NOVALGIN SODIUM) [Concomitant]
  6. PASPERTIN [Concomitant]
  7. CODILOL (DIHYDROCODEINE BITARTRATE) [Concomitant]
  8. FOLIC ACID [Concomitant]
  9. LAEVOLAC (LACTULOSE) [Concomitant]

REACTIONS (4)
  - HAEMOGLOBIN DECREASED [None]
  - METASTATIC BRONCHIAL CARCINOMA [None]
  - NEOPLASM PROGRESSION [None]
  - PANCYTOPENIA [None]
